FAERS Safety Report 8785544 (Version 1)
Quarter: 2012Q4

REPORT INFORMATION
  Report Type: 
  Country: BR (occurrence: BR)
  Receive Date: 20120914
  Receipt Date: 20120914
  Transmission Date: 20130627
  Serious: Yes (Hospitalization)
  Sender: FDA-Public Use
  Company Number: BR-PFIZER INC-2012224044

PATIENT
  Age: 38 Year
  Sex: Male

DRUGS (4)
  1. NORVASC [Suspect]
     Dosage: 5 mg, 1x/day
     Route: 048
     Dates: start: 2010
  2. CONCOR [Concomitant]
     Indication: ARRHYTHMIA PROPHYLAXIS
     Dosage: 1 DF, 1x/day
  3. DIOVAN (VALSARTAN) [Concomitant]
     Indication: HYPERTENSION
     Dosage: 80 mg, 1x/day
  4. MAREVAN ^NYCOMED^ [Concomitant]
     Indication: ANTICOAGULANT THERAPY
     Dosage: 5 mg, 1x/day
     Route: 048

REACTIONS (2)
  - Endocarditis [Unknown]
  - Spinal column injury [Not Recovered/Not Resolved]
